FAERS Safety Report 18928503 (Version 1)
Quarter: 2021Q1

REPORT INFORMATION
  Report Type: Spontaneous
  Country: US (occurrence: US)
  Receive Date: 20210223
  Receipt Date: 20210223
  Transmission Date: 20210420
  Serious: No
  Sender: FDA-Public Use
  Company Number: None

PATIENT
  Age: 82 Year
  Sex: Female
  Weight: 135.36 kg

DRUGS (13)
  1. FASLODEX [Concomitant]
     Active Substance: FULVESTRANT
  2. METOPROLOL TARTRATE. [Concomitant]
     Active Substance: METOPROLOL TARTRATE
  3. PROTONIX [Concomitant]
     Active Substance: PANTOPRAZOLE SODIUM
  4. METFORMIN HCL [Concomitant]
     Active Substance: METFORMIN HYDROCHLORIDE
  5. VENTOLIN HFA [Concomitant]
     Active Substance: ALBUTEROL SULFATE
  6. XANAX [Concomitant]
     Active Substance: ALPRAZOLAM
  7. HYDROCODONE?ACETAMINOPHEN [Concomitant]
     Active Substance: ACETAMINOPHEN\HYDROCODONE
  8. SINGULAIR [Concomitant]
     Active Substance: MONTELUKAST SODIUM
  9. SYMBYAX [Concomitant]
     Active Substance: FLUOXETINE HYDROCHLORIDE\OLANZAPINE
  10. NYSTATIN. [Concomitant]
     Active Substance: NYSTATIN
  11. IBRANCE [Suspect]
     Active Substance: PALBOCICLIB
     Route: 048
  12. AMLODIPINE BESYLATE. [Concomitant]
     Active Substance: AMLODIPINE BESYLATE
  13. LEXAPRO [Concomitant]
     Active Substance: ESCITALOPRAM OXALATE

REACTIONS (1)
  - Disease progression [None]

NARRATIVE: CASE EVENT DATE: 20210223
